FAERS Safety Report 8490245-6 (Version None)
Quarter: 2012Q3

REPORT INFORMATION
  Report Type: 
  Country: None (occurrence: None)
  Receive Date: 20120705
  Receipt Date: 20120127
  Transmission Date: 20120928
  Serious: No
  Sender: FDA-Public Use
  Company Number: US-BAUSCH-2012BL000555

PATIENT
  Age: 42 Year
  Sex: Female

DRUGS (1)
  1. OPCON-A [Suspect]
     Route: 047
     Dates: start: 20120127, end: 20120127

REACTIONS (5)
  - VISION BLURRED [None]
  - INCORRECT ROUTE OF DRUG ADMINISTRATION [None]
  - MYDRIASIS [None]
  - EXPIRED DRUG ADMINISTERED [None]
  - WRONG DRUG ADMINISTERED [None]
